FAERS Safety Report 4961114-0 (Version None)
Quarter: 2006Q1

REPORT INFORMATION
  Report Type: 
  Country: None (occurrence: None)
  Receive Date: 20060328
  Receipt Date: 20060316
  Transmission Date: 20060701
  Serious: Yes (Hospitalization, Other)
  Sender: FDA-Public Use
  Company Number: 2006034135

PATIENT
  Age: 90 Year
  Sex: Male

DRUGS (3)
  1. CARDENALIN (DOXAZOSIN) [Suspect]
     Indication: ILL-DEFINED DISORDER
     Dosage: 1 MG (DAILY), ORAL
     Route: 048
     Dates: start: 20060203
  2. ADALAT [Concomitant]
  3. MICARDIS [Concomitant]

REACTIONS (2)
  - CARDIAC FAILURE [None]
  - EOSINOPHILIA [None]
